FAERS Safety Report 6390636-3 (Version None)
Quarter: 2009Q4

REPORT INFORMATION
  Report Type: 
  Country: None (occurrence: None)
  Receive Date: 20091006
  Receipt Date: 20090923
  Transmission Date: 20100525
  Serious: Yes (Other)
  Sender: FDA-Public Use
  Company Number: FR-PFIZER INC-2009229553

PATIENT
  Age: 59 Year

DRUGS (1)
  1. AROMASINE [Suspect]
     Indication: BREAST CANCER
     Dosage: UNK

REACTIONS (2)
  - LEUKOPENIA [None]
  - NEUTROPENIA [None]
